FAERS Safety Report 9131814 (Version 1)
Quarter: 2013Q1

REPORT INFORMATION
  Report Type: Spontaneous
  Country: CN (occurrence: CN)
  Receive Date: 20130301
  Receipt Date: 20130301
  Transmission Date: 20140127
  Serious: Yes (Hospitalization)
  Sender: FDA-Public Use
  Company Number: CN-JNJFOC-20130214253

PATIENT
  Age: 60 Year
  Sex: Male

DRUGS (2)
  1. SPORANOX [Suspect]
     Indication: ORAL CANDIDIASIS
     Route: 048
     Dates: start: 2012, end: 2012
  2. SPORANOX [Suspect]
     Indication: ORAL CANDIDIASIS
     Route: 048
     Dates: start: 201209, end: 2012

REACTIONS (4)
  - White blood cell count decreased [Recovered/Resolved]
  - Pulmonary tuberculosis [Not Recovered/Not Resolved]
  - Heart rate increased [Unknown]
  - Drug ineffective [Unknown]
